FAERS Safety Report 6338376-0 (Version None)
Quarter: 2009Q3

REPORT INFORMATION
  Report Type: 
  Country: None (occurrence: None)
  Receive Date: 20090901
  Receipt Date: 20090817
  Transmission Date: 20100115
  Serious: Yes (Hospitalization)
  Sender: FDA-Public Use
  Company Number: 2009002503

PATIENT
  Age: 60 Year
  Sex: Male
  Weight: 69 kg

DRUGS (9)
  1. ERLOTINIB HYDROCHLORIDE [Suspect]
     Indication: OESOPHAGEAL CARCINOMA
     Dosage: (100 MG, QD), ORAL
     Route: 048
     Dates: start: 20090409
  2. BEVACIZUMAB (INJECTION FOR INFUSION) [Suspect]
     Indication: OESOPHAGEAL CARCINOMA
     Dosage: (15 MG/KG), INTRAVENOUS
     Route: 042
     Dates: start: 20090409, end: 20090430
  3. TAXOL [Suspect]
     Indication: OESOPHAGEAL CARCINOMA
     Dosage: (200 MG/M2), INTRAVENOUS
     Route: 042
     Dates: start: 20090409, end: 20090430
  4. CARBOPLATIN [Suspect]
     Indication: OESOPHAGEAL CARCINOMA
     Dosage: (714 MG), INTRAVENOUS
     Route: 042
     Dates: start: 20090409, end: 20090430
  5. FLUOROURACIL [Suspect]
     Indication: OESOPHAGEAL CARCINOMA
     Dosage: (497 MG), INTRAVENOUS
     Route: 042
     Dates: start: 20090409, end: 20090507
  6. METOPROLOL TARTRATE [Concomitant]
  7. ALLOPURINOL [Concomitant]
  8. PLAVIX [Concomitant]
  9. ZOCOR [Concomitant]

REACTIONS (4)
  - DEHYDRATION [None]
  - NAUSEA [None]
  - ODYNOPHAGIA [None]
  - VOMITING [None]
